FAERS Safety Report 4587547-2 (Version None)
Quarter: 2005Q1

REPORT INFORMATION
  Report Type: 
  Country: None (occurrence: None)
  Receive Date: 20050215
  Receipt Date: 20031118
  Transmission Date: 20050727
  Serious: No
  Sender: FDA-Public Use
  Company Number: C04-T-003

PATIENT
  Sex: Female

DRUGS (1)
  1. PROPOXYPHENE NAPSYLATE AND ACETAMINOPHEN [Suspect]
     Indication: PAIN

REACTIONS (1)
  - NAUSEA [None]
